FAERS Safety Report 10023787 (Version 1)
Quarter: 2014Q1

REPORT INFORMATION
  Report Type: Spontaneous
  Country: US (occurrence: US)
  Receive Date: 20140320
  Receipt Date: 20140320
  Transmission Date: 20141002
  Serious: Yes (Hospitalization)
  Sender: FDA-Public Use
  Company Number: US-JNJFOC-20140309121

PATIENT
  Age: 26 Year
  Sex: Male
  Weight: 100.7 kg

DRUGS (5)
  1. XARELTO [Suspect]
     Indication: PULMONARY EMBOLISM
     Route: 048
  2. XARELTO [Suspect]
     Indication: PULMONARY EMBOLISM
     Route: 048
     Dates: start: 201308
  3. LEXAPRO [Concomitant]
     Indication: DEPRESSION
     Route: 065
  4. AMBIEN [Concomitant]
     Indication: SLEEP DISORDER
     Route: 065
  5. XANAX [Concomitant]
     Indication: ANXIETY
     Route: 065

REACTIONS (1)
  - Deep vein thrombosis [Unknown]
